FAERS Safety Report 24043525 (Version 1)
Quarter: 2024Q3

REPORT INFORMATION
  Report Type: Spontaneous
  Country: US (occurrence: US)
  Receive Date: 20240703
  Receipt Date: 20240703
  Transmission Date: 20241016
  Serious: Yes (Death, Other)
  Sender: CHEPLAPHARM
  Company Number: US-CHEPLA-2024008144

PATIENT
  Age: 52 Year
  Sex: Male

DRUGS (6)
  1. VALGANCICLOVIR [Suspect]
     Active Substance: VALGANCICLOVIR
     Indication: Epstein-Barr viraemia
  2. VALGANCICLOVIR [Suspect]
     Active Substance: VALGANCICLOVIR
     Indication: Cytomegalovirus viraemia
  3. CYTOGAM [Suspect]
     Active Substance: HUMAN CYTOMEGALOVIRUS IMMUNE GLOBULIN
  4. MYCOPHENOLIC ACID [Concomitant]
     Active Substance: MYCOPHENOLIC ACID
  5. TACROLIMUS [Concomitant]
     Active Substance: TACROLIMUS
  6. PREDNISONE [Concomitant]
     Active Substance: PREDNISONE

REACTIONS (8)
  - Multiple organ dysfunction syndrome [Fatal]
  - Encephalopathy [Unknown]
  - Acute respiratory distress syndrome [Unknown]
  - Pericarditis [Unknown]
  - Haemophagocytic lymphohistiocytosis [Unknown]
  - Tuberculosis [Unknown]
  - Lymphadenopathy mediastinal [Unknown]
  - Off label use [Unknown]
